FAERS Safety Report 10012663 (Version 1)
Quarter: 2014Q1

REPORT INFORMATION
  Report Type: Spontaneous
  Country: SA (occurrence: SA)
  Receive Date: 20140314
  Receipt Date: 20140314
  Transmission Date: 20141002
  Serious: Yes (Other)
  Sender: FDA-Public Use
  Company Number: SA-WATSON-2014-04426

PATIENT
  Age: 3 Year
  Sex: Female

DRUGS (1)
  1. PREDNISOLONE (UNKNOWN) [Suspect]
     Indication: NEPHROTIC SYNDROME
     Dosage: 60 MG/M2, DAILY
     Route: 048

REACTIONS (3)
  - Diabetes mellitus inadequate control [Unknown]
  - Drug resistance [Recovered/Resolved]
  - Drug ineffective [Recovered/Resolved]
